FAERS Safety Report 9197681 (Version 2)
Quarter: 2013Q4

REPORT INFORMATION
  Report Type: Spontaneous
  Country: US (occurrence: US)
  Receive Date: 20130328
  Receipt Date: 20131025
  Transmission Date: 20140711
  Serious: Yes (Hospitalization, Other)
  Sender: FDA-Public Use
  Company Number: US-BAYER-2013-037980

PATIENT
  Age: 26 Year
  Sex: Female
  Weight: 56.69 kg

DRUGS (2)
  1. MIRENA [Suspect]
     Indication: CONTRACEPTION
     Dosage: 20 MCG/24HR, CONT
     Route: 015
     Dates: start: 20091210, end: 20110411
  2. ACYCLOVIR [ACICLOVIR SODIUM] [Concomitant]
     Dosage: 800 MG, 5 TIMES A DAY FOR 10 DAYS
     Route: 048
     Dates: start: 20101004

REACTIONS (10)
  - Embedded device [None]
  - Embedded device [None]
  - Device difficult to use [None]
  - Pain [None]
  - Injury [None]
  - Emotional distress [None]
  - Anxiety [None]
  - Abasia [None]
  - Scar [None]
  - Self esteem decreased [None]
